FAERS Safety Report 7384927-7 (Version None)
Quarter: 2011Q1

REPORT INFORMATION
  Report Type: 
  Country: None (occurrence: None)
  Receive Date: 20110330
  Receipt Date: 20110325
  Transmission Date: 20110831
  Serious: Yes (Hospitalization, Other)
  Sender: FDA-Public Use
  Company Number: US-PFIZER INC-2008150458

PATIENT
  Sex: Male
  Weight: 113.38 kg

DRUGS (6)
  1. GEODON [Suspect]
     Indication: ABNORMAL BEHAVIOUR
     Dosage: 40 MG, 2X/DAY
     Route: 048
     Dates: start: 20050101
  2. SEROQUEL [Concomitant]
     Indication: ABNORMAL BEHAVIOUR
     Dosage: UNK
  3. GEODON [Suspect]
     Dosage: 80 MG, UNK
  4. PROPRANOLOL [Concomitant]
     Indication: BLOOD PRESSURE
     Dosage: UNK
  5. LAMICTAL [Concomitant]
     Indication: CONVULSION
     Dosage: 100 MG, 2X/DAY
  6. PROPRANOLOL [Concomitant]
     Indication: ANXIETY

REACTIONS (13)
  - DYSKINESIA [None]
  - ANTICONVULSANT DRUG LEVEL DECREASED [None]
  - HEPATIC ENZYME INCREASED [None]
  - TREMOR [None]
  - WEIGHT INCREASED [None]
  - BLOOD GLUCOSE INCREASED [None]
  - LOWER LIMB FRACTURE [None]
  - ABNORMAL BEHAVIOUR [None]
  - POVERTY OF SPEECH [None]
  - DRUG INEFFECTIVE [None]
  - AGGRESSION [None]
  - HALLUCINATIONS, MIXED [None]
  - SLEEP DISORDER [None]
